FAERS Safety Report 15066764 (Version 1)
Quarter: 2018Q2

REPORT INFORMATION
  Report Type: Spontaneous
  Country: DE (occurrence: DE)
  Receive Date: 20180626
  Receipt Date: 20180626
  Transmission Date: 20180711
  Serious: Yes (Other)
  Sender: FDA-Public Use
  Company Number: DE-PFIZER INC-2018251899

PATIENT
  Sex: Female
  Weight: 2.64 kg

DRUGS (3)
  1. FOLSAN [Concomitant]
     Active Substance: FOLIC ACID
     Indication: PROPHYLAXIS OF NEURAL TUBE DEFECT
     Dosage: 5.1. - 15.1. GESTATIONAL WEEK
     Route: 064
     Dates: start: 20170526, end: 20170804
  2. SERTRALINE HCL [Suspect]
     Active Substance: SERTRALINE HYDROCHLORIDE
     Indication: DEPRESSION
     Dosage: 100 MG, UNK (100 [MG/D (BIS 25)]
     Route: 064
     Dates: start: 20170420, end: 20180203
  3. SERTRALINE HCL [Suspect]
     Active Substance: SERTRALINE HYDROCHLORIDE
     Dosage: 25 MG, UNK (100 [MG/D (BIS 25)]
     Route: 064
     Dates: start: 20170420, end: 20180203

REACTIONS (2)
  - Maternal exposure during pregnancy [Unknown]
  - Small for dates baby [Recovering/Resolving]

NARRATIVE: CASE EVENT DATE: 20180203
